FAERS Safety Report 10349943 (Version 1)
Quarter: 2014Q3

REPORT INFORMATION
  Report Type: Spontaneous
  Country: US (occurrence: US)
  Receive Date: 20140730
  Receipt Date: 20140730
  Transmission Date: 20150326
  Serious: No
  Sender: FDA-Public Use
  Company Number: US-BAYER-2014-109973

PATIENT
  Age: 86 Year
  Sex: Male
  Weight: 66 kg

DRUGS (3)
  1. ALEVE [Suspect]
     Active Substance: NAPROXEN SODIUM
     Indication: BACK PAIN
     Dosage: 1 DF, PRN
     Route: 048
     Dates: start: 2013
  2. LUPRON [Concomitant]
     Active Substance: LEUPROLIDE ACETATE
     Dosage: EVERY 3 MONTHS
  3. XGEVA [Concomitant]
     Active Substance: DENOSUMAB
     Dosage: MONTHLY

REACTIONS (3)
  - Wrong technique in drug usage process [Recovered/Resolved]
  - Wrong technique in drug usage process [None]
  - Throat irritation [Recovered/Resolved]

NARRATIVE: CASE EVENT DATE: 20140721
